FAERS Safety Report 4993260-X (Version None)
Quarter: 2006Q1

REPORT INFORMATION
  Report Type: 
  Country: None (occurrence: None)
  Receive Date: 20060314
  Receipt Date: 20050420
  Transmission Date: 20060701
  Serious: Yes (Other)
  Sender: FDA-Public Use
  Company Number: 200511037BCC

PATIENT
  Age: 73 Year
  Sex: Female
  Weight: 47.6277 kg

DRUGS (15)
  1. ALEVE [Suspect]
     Dosage: 440 MG, QD, ORAL
     Route: 048
  2. FOSAMAX [Concomitant]
  3. PRINIVIL [Concomitant]
  4. PREMARIN [Concomitant]
  5. CLONAZEPAM [Concomitant]
  6. FLEXERIL [Concomitant]
  7. LIPITOR [Concomitant]
  8. ACETAMINOPHEN W/ CODEINE [Concomitant]
  9. MAGNESIUM SULFATE [Concomitant]
  10. OSCAL [Concomitant]
  11. CITRUCEL [Concomitant]
  12. AMBIEN [Concomitant]
  13. QUININE SULFATE [Concomitant]
  14. ULTRAM [Concomitant]
  15. ZETIA [Concomitant]

REACTIONS (2)
  - SPEECH DISORDER [None]
  - SWOLLEN TONGUE [None]
